FAERS Safety Report 8005939-6 (Version None)
Quarter: 2011Q4

REPORT INFORMATION
  Report Type: 
  Country: None (occurrence: None)
  Receive Date: 20111223
  Receipt Date: 20111214
  Transmission Date: 20120403
  Serious: Yes (Other)
  Sender: FDA-Public Use
  Company Number: US-ASTRAZENECA-2011SE73496

PATIENT
  Sex: Female

DRUGS (5)
  1. CRESTOR [Suspect]
     Indication: LIPIDS INCREASED
     Route: 048
     Dates: start: 20111110, end: 20111126
  2. VITAMINS A,B,C,D AND E [Concomitant]
  3. IRON PREPARATION [Concomitant]
  4. LOVAZA [Concomitant]
  5. ETRA STRENGTH TYLENOL [Concomitant]

REACTIONS (4)
  - ORAL MUCOSAL EXFOLIATION [None]
  - GINGIVAL PAIN [None]
  - OROPHARYNGEAL BLISTERING [None]
  - LIP BLISTER [None]
